FAERS Safety Report 23282683 (Version 1)
Quarter: 2023Q4

REPORT INFORMATION
  Report Type: Spontaneous
  Country: US (occurrence: US)
  Receive Date: 20231211
  Receipt Date: 20231211
  Transmission Date: 20240109
  Serious: Yes (Other)
  Sender: FDA-Public Use
  Company Number: US-EPICPHARMA-US-2023EPCSPO01803

PATIENT
  Age: 56 Year
  Sex: Male

DRUGS (21)
  1. NABUMETONE [Suspect]
     Active Substance: NABUMETONE
     Indication: Psoriasis
     Route: 048
  2. TIZANIDINE HYDROCHLORIDE [Suspect]
     Active Substance: TIZANIDINE HYDROCHLORIDE
     Indication: Psoriasis
     Route: 048
  3. BUPROPION HYDROCHLORIDE [Suspect]
     Active Substance: BUPROPION HYDROCHLORIDE
     Indication: Psoriasis
     Route: 048
  4. COSENTYX [Suspect]
     Active Substance: SECUKINUMAB
     Indication: Psoriasis
     Dosage: 150 MILLIGRAM PER MILLILITRE, QW
     Route: 058
  5. COSENTYX [Suspect]
     Active Substance: SECUKINUMAB
     Dosage: 300 MILLIGRAM PER MILLILITRE, QMO
     Route: 058
  6. COSENTYX [Suspect]
     Active Substance: SECUKINUMAB
     Route: 065
     Dates: start: 20231031
  7. TRIAMCINOLONE [Suspect]
     Active Substance: TRIAMCINOLONE
     Indication: Psoriasis
     Route: 061
  8. ATORVASTATIN [Suspect]
     Active Substance: ATORVASTATIN
     Indication: Psoriasis
     Route: 065
  9. EZETIMIBE [Suspect]
     Active Substance: EZETIMIBE
     Indication: Psoriasis
     Route: 048
  10. GABAPENTIN [Suspect]
     Active Substance: GABAPENTIN
     Indication: Psoriasis
     Route: 048
  11. ARIPIPRAZOLE [Suspect]
     Active Substance: ARIPIPRAZOLE
     Indication: Psoriasis
     Route: 065
  12. CYCLOBENZAPRINE [Suspect]
     Active Substance: CYCLOBENZAPRINE
     Indication: Psoriasis
     Route: 048
  13. MAGNESIUM [Suspect]
     Active Substance: MAGNESIUM
     Indication: Psoriasis
     Route: 048
  14. METOPROLOL [Suspect]
     Active Substance: METOPROLOL
     Indication: Psoriasis
     Dosage: SPRINKLE FR 24 HR
     Route: 048
  15. PROTOPIC [Suspect]
     Active Substance: TACROLIMUS
     Indication: Psoriasis
     Route: 061
  16. SILVADENE [Suspect]
     Active Substance: SILVER SULFADIAZINE
     Indication: Psoriasis
     Dosage: BID
     Route: 061
  17. ASPIRIN [Suspect]
     Active Substance: ASPIRIN
     Indication: Psoriasis
     Route: 048
  18. OTEZLA [Suspect]
     Active Substance: APREMILAST
     Indication: Psoriasis
     Route: 048
  19. TIKOSYN [Suspect]
     Active Substance: DOFETILIDE
     Indication: Psoriasis
     Route: 048
  20. DUPIXENT [Suspect]
     Active Substance: DUPILUMAB
     Indication: Product used for unknown indication
     Route: 058
  21. ULTIMATE OMEGA [Concomitant]
     Indication: Product used for unknown indication
     Route: 065

REACTIONS (15)
  - Psoriatic arthropathy [Unknown]
  - Cataract [Unknown]
  - Dermatitis atopic [Unknown]
  - Rash erythematous [Unknown]
  - Melanocytic naevus [Unknown]
  - Macule [Unknown]
  - Papule [Unknown]
  - Skin abrasion [Unknown]
  - Scab [Unknown]
  - Lentigo [Unknown]
  - Skin lesion [Not Recovered/Not Resolved]
  - Psoriasis [Unknown]
  - Pruritus [Unknown]
  - Drug effect less than expected [Unknown]
  - Product use in unapproved indication [Unknown]
